FAERS Safety Report 9651116 (Version 1)
Quarter: 2013Q4

REPORT INFORMATION
  Report Type: Spontaneous
  Country: US (occurrence: None)
  Receive Date: 20131028
  Receipt Date: 20131028
  Transmission Date: 20140711
  Serious: Yes (Life-Threatening, Hospitalization, Other)
  Sender: FDA-Public Use
  Company Number: None

PATIENT
  Age: 79 Year
  Sex: Female
  Weight: 99.79 kg

DRUGS (1)
  1. ZOLPIDEM [Suspect]

REACTIONS (2)
  - Coma [None]
  - Depressed level of consciousness [None]
